FAERS Safety Report 23953294 (Version 2)
Quarter: 2024Q2

REPORT INFORMATION
  Report Type: Spontaneous
  Country: US (occurrence: US)
  Receive Date: 20240608
  Receipt Date: 20240611
  Transmission Date: 20240716
  Serious: No
  Sender: FDA-Public Use
  Company Number: US-ABBVIE-5785368

PATIENT
  Age: 77 Year
  Sex: Male
  Weight: 63.502 kg

DRUGS (3)
  1. CARBIDOPA\LEVODOPA [Suspect]
     Active Substance: CARBIDOPA\LEVODOPA
     Indication: Parkinson^s disease
     Dosage: START DATE TEXT: SEVERAL YEARS AGO
     Route: 050
  2. CARBIDOPA\LEVODOPA [Suspect]
     Active Substance: CARBIDOPA\LEVODOPA
  3. OXCARBAZEPINE [Concomitant]
     Active Substance: OXCARBAZEPINE
     Indication: Seizure prophylaxis

REACTIONS (12)
  - Wrong device used [Recovered/Resolved]
  - Somnolence [Recovering/Resolving]
  - Weight decreased [Not Recovered/Not Resolved]
  - Hallucination [Not Recovered/Not Resolved]
  - Device expulsion [Not Recovered/Not Resolved]
  - Irritability [Recovering/Resolving]
  - Muscle atrophy [Not Recovered/Not Resolved]
  - Gait disturbance [Recovering/Resolving]
  - Hiatus hernia [Not Recovered/Not Resolved]
  - Dyskinesia [Recovering/Resolving]
  - Intellectual disability [Recovering/Resolving]
  - Psychomotor hyperactivity [Recovering/Resolving]

NARRATIVE: CASE EVENT DATE: 20240430
